FAERS Safety Report 12638504 (Version 2)
Quarter: 2016Q4

REPORT INFORMATION
  Report Type: Spontaneous
  Country: US (occurrence: US)
  Receive Date: 20160809
  Receipt Date: 20161108
  Transmission Date: 20170207
  Serious: No
  Sender: FDA-Public Use
  Company Number: US-SA-2016SA132751

PATIENT
  Age: 70 Year
  Sex: Female
  Weight: 91.35 kg

DRUGS (7)
  1. PRALUENT [Suspect]
     Active Substance: ALIROCUMAB
     Indication: HYPERLIPIDAEMIA
     Route: 058
     Dates: start: 20160531, end: 20160717
  2. CALCIUM [Concomitant]
     Active Substance: CALCIUM
     Dates: start: 20131021
  3. ZETIA [Concomitant]
     Active Substance: EZETIMIBE
     Dates: start: 20131015
  4. BUFFERIN [Concomitant]
     Active Substance: ASPIRIN
     Dates: start: 20131015
  5. METOPROLOL SUCCINATE. [Concomitant]
     Active Substance: METOPROLOL SUCCINATE
     Dates: start: 20130109
  6. FISH OIL [Concomitant]
     Active Substance: FISH OIL
     Dates: start: 20131021
  7. ALIROCUMAB PREFILLED PEN [Concomitant]
     Active Substance: ALIROCUMAB
     Dates: start: 20160525

REACTIONS (4)
  - Back pain [Unknown]
  - Myalgia [Unknown]
  - Abdominal pain [Unknown]
  - Feeling abnormal [Unknown]

NARRATIVE: CASE EVENT DATE: 20160705
